FAERS Safety Report 13369373 (Version 1)
Quarter: 2017Q1

REPORT INFORMATION
  Report Type: Spontaneous
  Country: US (occurrence: US)
  Receive Date: 20170324
  Receipt Date: 20170324
  Transmission Date: 20170429
  Serious: Yes (Other)
  Sender: FDA-Public Use
  Company Number: None

PATIENT
  Age: 67 Year
  Sex: Female
  Weight: 78.75 kg

DRUGS (17)
  1. TRIAMTERENE AND HYDROCHLOROTHIAZIDE [Concomitant]
     Active Substance: HYDROCHLOROTHIAZIDE\TRIAMTERENE
  2. IBUPROFEN. [Concomitant]
     Active Substance: IBUPROFEN
  3. TYLENOL [Concomitant]
     Active Substance: ACETAMINOPHEN
  4. FISH OIL [Concomitant]
     Active Substance: FISH OIL
  5. GLUCOSAMINE/CHONDROITIN/MSM [Concomitant]
  6. LOW DOSE ASPIRIN [Concomitant]
     Active Substance: ASPIRIN
  7. VITAMIN D [Concomitant]
     Active Substance: CHOLECALCIFEROL
  8. NIFEDIPINE. [Concomitant]
     Active Substance: NIFEDIPINE
  9. PRAVASTATIN. [Concomitant]
     Active Substance: PRAVASTATIN
  10. SOOLANTRA [Concomitant]
     Active Substance: IVERMECTIN
  11. ALEVE [Concomitant]
     Active Substance: NAPROXEN SODIUM
  12. LYSINE [Concomitant]
     Active Substance: LYSINE
  13. AMOXICILLIN. [Suspect]
     Active Substance: AMOXICILLIN
     Indication: POSTOPERATIVE CARE
     Dosage: ?          QUANTITY:1 CAPSULE(S); EVERY 6 HOURS?
     Route: 048
     Dates: start: 20161105, end: 20170228
  14. FINACEA CREAM [Concomitant]
  15. AMOXICILLIN. [Suspect]
     Active Substance: AMOXICILLIN
     Indication: ENDODONTIC PROCEDURE
     Dosage: ?          QUANTITY:1 CAPSULE(S); EVERY 6 HOURS?
     Route: 048
     Dates: start: 20161105, end: 20170228
  16. CALCIUM [Concomitant]
     Active Substance: CALCIUM
  17. MULTI-VITAMIN [Concomitant]
     Active Substance: .ALPHA.-TOCOPHEROL ACETATE, DL-\ASCORBIC ACID\CYANOCOBALAMIN\FLUORIDE ION\FOLIC ACID\NIACIN\PYRIDOXINE\RIBOFLAVIN\THIAMINE\VITAMIN A\VITAMIN D

REACTIONS (3)
  - Tendonitis [None]
  - Toothache [None]
  - Procedural pain [None]

NARRATIVE: CASE EVENT DATE: 20161215
